FAERS Safety Report 5919519-7 (Version None)
Quarter: 2008Q4

REPORT INFORMATION
  Report Type: 
  Country: None (occurrence: None)
  Receive Date: 20081015
  Receipt Date: 20081002
  Transmission Date: 20090506
  Serious: Yes (Hospitalization)
  Sender: FDA-Public Use
  Company Number: KR-JNJFOC-20081002888

PATIENT
  Age: 69 Year
  Sex: Female

DRUGS (4)
  1. TRAMADOL HCL [Suspect]
     Indication: PARAESTHESIA
     Route: 065
  2. GABAPENTIN [Suspect]
     Route: 065
  3. GABAPENTIN [Suspect]
     Route: 065
  4. GABAPENTIN [Suspect]
     Indication: PARAESTHESIA
     Route: 065

REACTIONS (1)
  - MYOCLONUS [None]
